FAERS Safety Report 6465680-8 (Version None)
Quarter: 2009Q4

REPORT INFORMATION
  Report Type: 
  Country: None (occurrence: None)
  Receive Date: 20091201
  Receipt Date: 20081112
  Transmission Date: 20100525
  Serious: No
  Sender: FDA-Public Use
  Company Number: US-AMGEN-KDL317532

PATIENT
  Sex: Female

DRUGS (1)
  1. ENBREL [Suspect]
     Indication: DRUG USE FOR UNKNOWN INDICATION
     Dates: start: 20081009, end: 20081022

REACTIONS (11)
  - BACK PAIN [None]
  - CHEST PAIN [None]
  - FEELING HOT [None]
  - GAIT DISTURBANCE [None]
  - GENERALISED OEDEMA [None]
  - HAEMORRHAGE [None]
  - HEADACHE [None]
  - INSOMNIA [None]
  - MOVEMENT DISORDER [None]
  - TOOTH EXTRACTION [None]
  - VASODILATATION [None]
